FAERS Safety Report 6021294-5 (Version None)
Quarter: 2008Q4

REPORT INFORMATION
  Report Type: 
  Country: None (occurrence: None)
  Receive Date: 20081229
  Receipt Date: 20081219
  Transmission Date: 20090506
  Serious: Yes (Other)
  Sender: FDA-Public Use
  Company Number: CA-ABBOTT-08P-028-0494032-00

PATIENT
  Sex: Female
  Weight: 58.566 kg

DRUGS (3)
  1. HUMIRA [Suspect]
     Indication: CROHN'S DISEASE
     Route: 058
     Dates: start: 20071004
  2. NEXIUM [Concomitant]
     Indication: DRUG USE FOR UNKNOWN INDICATION
  3. PREDNISONE [Concomitant]
     Indication: CROHN'S DISEASE

REACTIONS (2)
  - CROHN'S DISEASE [None]
  - FOOT FRACTURE [None]
